FAERS Safety Report 9478784 (Version 4)
Quarter: 2013Q3

REPORT INFORMATION
  Report Type: Spontaneous
  Country: KR (occurrence: KR)
  Receive Date: 20130827
  Receipt Date: 20130911
  Transmission Date: 20140515
  Serious: No
  Sender: FDA-Public Use
  Company Number: KR-ABBOTT-13P-090-1136363-00

PATIENT
  Age: 69 Year
  Sex: Male
  Weight: 53 kg

DRUGS (16)
  1. KALETRA 200/50 [Suspect]
     Indication: HIV INFECTION
     Dosage: UNIT:400/100MG, DAILY:800/200MG, FORM: 200/50MG
     Route: 048
     Dates: start: 20110530, end: 20120228
  2. KALETRA 200/50 [Suspect]
     Dosage: UNIT + DAILY: 800/200MG, FORM: 200/50MG
     Route: 048
     Dates: start: 20120229
  3. DDI [Suspect]
     Indication: ANTIRETROVIRAL THERAPY
     Dates: start: 20110706, end: 20110913
  4. COMBIVIR [Suspect]
     Indication: ANTIRETROVIRAL THERAPY
     Dates: start: 20110530, end: 20110705
  5. RIFAMPIN [Concomitant]
     Indication: TUBERCULOSIS
     Route: 048
     Dates: start: 20110514
  6. ABACAVIR [Concomitant]
     Indication: ANTIRETROVIRAL THERAPY
     Dates: start: 20110914, end: 20120228
  7. 3TC [Concomitant]
     Indication: ANTIRETROVIRAL THERAPY
     Dates: start: 20110706, end: 20120228
  8. ABACAVIR W/LAMIVUDINE [Concomitant]
     Indication: ANTIRETROVIRAL THERAPY
     Dates: start: 20120229
  9. DIFLUCAN [Concomitant]
     Indication: CANDIDA INFECTION
     Route: 048
     Dates: start: 20110530, end: 20110607
  10. MYAMBUTOL [Concomitant]
     Indication: TUBERCULOSIS
     Dosage: 800MG DAILY
     Route: 048
     Dates: start: 20110514, end: 20110913
  11. YUHANZID [Concomitant]
     Indication: TUBERCULOSIS
     Dosage: 300 MG DAILY
     Route: 048
     Dates: start: 20110514, end: 20110913
  12. PYRAZINAMIDE [Concomitant]
     Indication: TUBERCULOSIS
     Route: 048
     Dates: start: 20110514, end: 20110830
  13. CRAVIT [Concomitant]
     Indication: TUBERCULOSIS
     Route: 048
     Dates: start: 20110524, end: 20110927
  14. PROTHIONAMIDE [Concomitant]
     Indication: TUBERCULOSIS
     Route: 048
     Dates: start: 20110914, end: 20120228
  15. PAS [Concomitant]
     Indication: TUBERCULOSIS
     Dosage: 1 PACK; DAILY DOSE: 1 OTHER
     Route: 048
     Dates: start: 20110914, end: 20120228
  16. ATENOLOL [Concomitant]
     Indication: HYPERTENSION
     Route: 048

REACTIONS (7)
  - Blood cholesterol decreased [Unknown]
  - Neuropathy peripheral [Recovering/Resolving]
  - Blood uric acid increased [Unknown]
  - Gamma-glutamyltransferase increased [Unknown]
  - High density lipoprotein decreased [Unknown]
  - Haemoglobin decreased [Unknown]
  - Hepatitis A virus test positive [Unknown]
